FAERS Safety Report 4516260-2 (Version None)
Quarter: 2004Q4

REPORT INFORMATION
  Report Type: 
  Country: None (occurrence: None)
  Receive Date: 20041129
  Receipt Date: 20041122
  Transmission Date: 20050328
  Serious: Yes (Other)
  Sender: FDA-Public Use
  Company Number: 2004-09-1921

PATIENT
  Sex: Male

DRUGS (1)
  1. NASONEX [Suspect]
     Dosage: NASAL SPRAY
     Route: 045

REACTIONS (3)
  - DRUG EFFECT DECREASED [None]
  - PHARMACEUTICAL PRODUCT COMPLAINT [None]
  - SURGERY [None]
